FAERS Safety Report 18115961 (Version 2)
Quarter: 2020Q3

REPORT INFORMATION
  Report Type: Spontaneous
  Country: US (occurrence: US)
  Receive Date: 20200805
  Receipt Date: 20200929
  Transmission Date: 20201103
  Serious: Yes (Other)
  Sender: FDA-Public Use
  Company Number: US-GILEAD-2020-0488478

PATIENT
  Age: 55 Year
  Sex: Male
  Weight: 74.84 kg

DRUGS (31)
  1. NORVIR [Concomitant]
     Active Substance: RITONAVIR
  2. CLARITHROMYCIN. [Concomitant]
     Active Substance: CLARITHROMYCIN
  3. OFLOXACIN. [Concomitant]
     Active Substance: OFLOXACIN
  4. TRELEGY ELLIPTA [Concomitant]
     Active Substance: FLUTICASONE FUROATE\UMECLIDINIUM BROMIDE\VILANTEROL TRIFENATATE
  5. ARIPIPRAZOLE. [Concomitant]
     Active Substance: ARIPIPRAZOLE
  6. VIREAD [Suspect]
     Active Substance: TENOFOVIR DISOPROXIL FUMARATE
     Indication: HIV INFECTION
     Dosage: UNK
     Route: 048
     Dates: start: 2007
  7. VIREAD [Suspect]
     Active Substance: TENOFOVIR DISOPROXIL FUMARATE
     Dosage: UNK
     Route: 048
     Dates: start: 2001, end: 2004
  8. BIKTARVY [Concomitant]
     Active Substance: BICTEGRAVIR SODIUM\EMTRICITABINE\TENOFOVIR ALAFENAMIDE FUMARATE
  9. BUPROPION. [Concomitant]
     Active Substance: BUPROPION
  10. RITONAVIR. [Concomitant]
     Active Substance: RITONAVIR
  11. OMEPRAZOLE. [Concomitant]
     Active Substance: OMEPRAZOLE
  12. TRUVADA [Suspect]
     Active Substance: EMTRICITABINE\TENOFOVIR DISOPROXIL FUMARATE
     Indication: HIV INFECTION
     Dosage: UNK
     Route: 048
     Dates: start: 2007
  13. TRUVADA [Suspect]
     Active Substance: EMTRICITABINE\TENOFOVIR DISOPROXIL FUMARATE
     Dosage: UNK
     Route: 048
     Dates: start: 2004, end: 201711
  14. DESCOVY [Concomitant]
     Active Substance: EMTRICITABINE\TENOFOVIR ALAFENAMIDE FUMARATE
  15. REYATAZ [Concomitant]
     Active Substance: ATAZANAVIR SULFATE
  16. BUDESONIDE. [Concomitant]
     Active Substance: BUDESONIDE
  17. DULOXETINE. [Concomitant]
     Active Substance: DULOXETINE
  18. LEVOFLOXACIN. [Concomitant]
     Active Substance: LEVOFLOXACIN
  19. PANTOPRAZOLE [Concomitant]
     Active Substance: PANTOPRAZOLE
  20. ALBUTEROL [SALBUTAMOL SULFATE] [Concomitant]
     Active Substance: ALBUTEROL SULFATE
  21. PROAIR HFA [Concomitant]
     Active Substance: ALBUTEROL SULFATE
  22. ROPINIROLE [ROPINIROLE HYDROCHLORIDE] [Concomitant]
     Active Substance: ROPINIROLE HYDROCHLORIDE
  23. PROZAC [Concomitant]
     Active Substance: FLUOXETINE HYDROCHLORIDE
  24. FLUTICASONE. [Concomitant]
     Active Substance: FLUTICASONE
  25. PREDNISONE. [Concomitant]
     Active Substance: PREDNISONE
  26. SYMBICORT [Concomitant]
     Active Substance: BUDESONIDE\FORMOTEROL FUMARATE DIHYDRATE
  27. PREZCOBIX [Concomitant]
     Active Substance: COBICISTAT\DARUNAVIR ETHANOLATE
  28. IPRATROPIUM BROMIDE AND ALBUTEROL SULFATE [Concomitant]
     Active Substance: ALBUTEROL SULFATE\IPRATROPIUM BROMIDE
  29. PRAZOSIN. [Concomitant]
     Active Substance: PRAZOSIN
  30. AMOXICILLIN. [Concomitant]
     Active Substance: AMOXICILLIN
  31. MONTELUKAST [Concomitant]
     Active Substance: MONTELUKAST SODIUM

REACTIONS (9)
  - Osteopenia [Unknown]
  - Pain [Not Recovered/Not Resolved]
  - Arthralgia [Unknown]
  - Osteoporosis [Not Recovered/Not Resolved]
  - Depression [Not Recovered/Not Resolved]
  - Anxiety [Not Recovered/Not Resolved]
  - Bone density decreased [Unknown]
  - Emotional distress [Not Recovered/Not Resolved]
  - Anhedonia [Not Recovered/Not Resolved]

NARRATIVE: CASE EVENT DATE: 200503
